FAERS Safety Report 19191671 (Version 1)
Quarter: 2021Q2

REPORT INFORMATION
  Report Type: Spontaneous
  Country: US (occurrence: US)
  Receive Date: 20210428
  Receipt Date: 20210428
  Transmission Date: 20210717
  Serious: No
  Sender: FDA-Public Use
  Company Number: US-PFIZER INC-2021359400

PATIENT
  Age: 45 Year
  Sex: Male
  Weight: 113.38 kg

DRUGS (1)
  1. INLYTA [Suspect]
     Active Substance: AXITINIB
     Indication: RENAL CELL CARCINOMA
     Dosage: 5 MG, DAILY (EVERY 12 HOURS FOR 6 WEEKS)
     Route: 048
     Dates: start: 20210310

REACTIONS (3)
  - Sluggishness [Unknown]
  - Bradykinesia [Unknown]
  - Apathy [Unknown]
